FAERS Safety Report 4997415-X (Version None)
Quarter: 2006Q1

REPORT INFORMATION
  Report Type: 
  Country: None (occurrence: None)
  Receive Date: 20060315
  Receipt Date: 20051130
  Transmission Date: 20060701
  Serious: Yes (Other)
  Sender: FDA-Public Use
  Company Number: 427090

PATIENT
  Sex: Female

DRUGS (2)
  1. BONIVA [Suspect]
  2. UNSPECIFIED MEDICATION (GENERIC UNKNOWN) [Concomitant]

REACTIONS (1)
  - RASH MACULAR [None]
